FAERS Safety Report 17068909 (Version 1)
Quarter: 2019Q4

REPORT INFORMATION
  Report Type: Spontaneous
  Country: US (occurrence: US)
  Receive Date: 20191024
  Receipt Date: 20191024
  Transmission Date: 20200122
  Serious: Yes (Death, Life-Threatening, Hospitalization)
  Sender: FDA-Public Use
  Company Number: None

PATIENT
  Age: 85 Year
  Sex: Male
  Weight: 117.93 kg

DRUGS (18)
  1. INDOMETHACIN. [Suspect]
     Active Substance: INDOMETHACIN
     Indication: GOUT
     Dosage: ?          QUANTITY:1 DF DOSAGE FORM;?
     Route: 048
     Dates: start: 20190827, end: 20190829
  2. COREG [Concomitant]
     Active Substance: CARVEDILOL
  3. GEMFIBROZIL. [Concomitant]
     Active Substance: GEMFIBROZIL
  4. SYNTHROID [Concomitant]
     Active Substance: LEVOTHYROXINE SODIUM
  5. ALLOPURINOL. [Concomitant]
     Active Substance: ALLOPURINOL
  6. AMLOIPINE [Concomitant]
  7. FLOMAX [Concomitant]
     Active Substance: TAMSULOSIN HYDROCHLORIDE
  8. COLACE [Concomitant]
     Active Substance: DOCUSATE SODIUM
  9. LIPITOR [Concomitant]
     Active Substance: ATORVASTATIN CALCIUM
  10. PLAVIX [Concomitant]
     Active Substance: CLOPIDOGREL BISULFATE
  11. LASIX [Concomitant]
     Active Substance: FUROSEMIDE
  12. HUMALOG MIX [Concomitant]
     Active Substance: INSULIN LISPRO
  13. HUMALOG [Concomitant]
     Active Substance: INSULIN LISPRO
  14. PEROCET [Concomitant]
  15. FERROUS SULFATE. [Concomitant]
     Active Substance: FERROUS SULFATE
  16. ASPIRIN. [Concomitant]
     Active Substance: ASPIRIN
  17. FINASTERIDE. [Concomitant]
     Active Substance: FINASTERIDE
  18. LEVEMIR [Concomitant]
     Active Substance: INSULIN DETEMIR

REACTIONS (12)
  - Melaena [None]
  - Hyperkalaemia [None]
  - Chromaturia [None]
  - Cardiac failure [None]
  - Decreased appetite [None]
  - Dyspnoea [None]
  - Pulmonary oedema [None]
  - Urine output decreased [None]
  - Cardiovascular disorder [None]
  - Asthenia [None]
  - Renal failure [None]
  - Haematochezia [None]

NARRATIVE: CASE EVENT DATE: 20190828
